FAERS Safety Report 5519796-0 (Version None)
Quarter: 2007Q4

REPORT INFORMATION
  Report Type: 
  Country: None (occurrence: None)
  Receive Date: 20071116
  Receipt Date: 20070822
  Transmission Date: 20080405
  Serious: No
  Sender: FDA-Public Use
  Company Number: A0674697A

PATIENT
  Age: 75 Year
  Sex: Male

DRUGS (5)
  1. COREG CR [Suspect]
     Indication: HYPERTENSION
     Dosage: 40MG PER DAY
     Route: 048
     Dates: start: 20070816
  2. METFORMIN HCL [Concomitant]
  3. QUINAPRIL HCL [Concomitant]
  4. AVAPRO [Concomitant]
  5. GLIPIZIDE [Concomitant]

REACTIONS (2)
  - DIZZINESS [None]
  - OVERDOSE [None]
